FAERS Safety Report 9201986 (Version 1)
Quarter: 2013Q1

REPORT INFORMATION
  Report Type: Spontaneous
  Country: IT (occurrence: None)
  Receive Date: 20130327
  Receipt Date: 20130327
  Transmission Date: 20140127
  Serious: Yes (Hospitalization)
  Sender: FDA-Public Use
  Company Number: GER/ITL/13/0028613

PATIENT
  Age: 43 Year
  Sex: Female

DRUGS (3)
  1. OLANZAPINE (OLANZAPINE) [Suspect]
     Indication: PSYCHOTIC DISORDER
     Dosage: 28 DOSAGE FORMS, 1 IN 1 TOTAL
     Dates: start: 20130123, end: 20130123
  2. MOMENTACT [Suspect]
     Indication: PRODUCT USED FOR UNKNOWN INDICATION
     Route: 048
     Dates: start: 20130121, end: 20130123
  3. SERENASE (MEPROBAMATE) [Concomitant]

REACTIONS (3)
  - Overdose [None]
  - Somnolence [None]
  - Poisoning [None]
